APPROVED DRUG PRODUCT: FOLIC ACID
Active Ingredient: FOLIC ACID
Strength: 5MG/ML
Dosage Form/Route: INJECTABLE;INJECTION
Application: A202522 | Product #001 | TE Code: AP
Applicant: XGEN PHARMACEUTICALS DJB INC
Approved: Nov 6, 2019 | RLD: No | RS: No | Type: RX